FAERS Safety Report 10757534 (Version 1)
Quarter: 2015Q1

REPORT INFORMATION
  Report Type: Spontaneous
  Country: US (occurrence: US)
  Receive Date: 20150203
  Receipt Date: 20150203
  Transmission Date: 20150721
  Serious: No
  Sender: FDA-Public Use
  Company Number: US-009507513-1501USA002639

PATIENT
  Age: 17 Year
  Sex: Female

DRUGS (11)
  1. MERCAPTOPURINE. [Concomitant]
     Active Substance: MERCAPTOPURINE
     Indication: T-CELL TYPE ACUTE LEUKAEMIA
     Dosage: 60 MG/M2, DAILY X 28 DAYS
  2. PREDNISOLONE. [Concomitant]
     Active Substance: PREDNISOLONE
     Indication: T-CELL TYPE ACUTE LEUKAEMIA
     Dosage: 40 MG/M2 DAY X 28 DAYS AT 21 WEEKS OF GESTATION
  3. HYDROCORTISONE. [Concomitant]
     Active Substance: HYDROCORTISONE
     Indication: T-CELL TYPE ACUTE LEUKAEMIA
     Dosage: 50 MG ON DAYS 7 AND 28 AT 21 WEEKS OF GESTATION
     Route: 037
  4. BETAMETHASONE [Suspect]
     Active Substance: BETAMETHASONE
     Indication: MATERNAL THERAPY TO ENHANCE FOETAL LUNG MATURITY
     Dosage: 12 MG INTRAMUSCULAR, IN 2 DOSES 24 HOURS APART
     Route: 030
  5. METHOTREXATE [Concomitant]
     Active Substance: METHOTREXATE
     Dosage: INTRATHECAL AND SYSTEMIC
     Route: 037
  6. SULFAMETHOXAZOLE (+) TRIMETHOPRIM [Concomitant]
     Active Substance: SULFAMETHOXAZOLE\TRIMETHOPRIM
     Indication: ANTIFUNGAL PROPHYLAXIS
     Route: 048
  7. DAUNORUBICIN [Concomitant]
     Active Substance: DAUNORUBICIN
     Indication: T-CELL TYPE ACUTE LEUKAEMIA
     Dosage: 30 MG/M2 WEEKLY X 4 WEEKS AT 21 WEEKS OF GESTATION
  8. CYTARABINE. [Concomitant]
     Active Substance: CYTARABINE
     Indication: T-CELL TYPE ACUTE LEUKAEMIA
     Dosage: 50 MG ON DAYS 7 AND 28 AT 21 WEEKS OF GESTATION
     Route: 037
  9. CYCLOPHOSPHAMIDE. [Concomitant]
     Active Substance: CYCLOPHOSPHAMIDE
     Indication: T-CELL TYPE ACUTE LEUKAEMIA
     Dosage: 1 G/M2, 2 DOSES 28 DAYS APART AT 26 WEEKS OF GESTATION
  10. VINCRISTINE SULFATE. [Concomitant]
     Active Substance: VINCRISTINE SULFATE
     Indication: T-CELL TYPE ACUTE LEUKAEMIA
     Dosage: 2 MG WEEKLY X 4 WEEKS AT 21 WEEKS OF GESTATION
  11. CYTARABINE. [Concomitant]
     Active Substance: CYTARABINE
     Dosage: 75 MG/M2, 4 DOSES/WEEK X 4 WEEKS AT 26 WEEKS OF GESTATION

REACTIONS (1)
  - Exposure during pregnancy [Recovered/Resolved]
